FAERS Safety Report 6582345-2 (Version None)
Quarter: 2010Q1

REPORT INFORMATION
  Report Type: 
  Country: None (occurrence: None)
  Receive Date: 20100212
  Receipt Date: 20100212
  Transmission Date: 20100710
  Serious: Yes (Other)
  Sender: FDA-Public Use
  Company Number: None

PATIENT
  Age: 26 Year
  Sex: Male
  Weight: 74.4 kg

DRUGS (3)
  1. VALPROIC ACID [Suspect]
     Indication: BIPOLAR DISORDER
     Dosage: 500 MG EVERY DAY PO
     Route: 048
     Dates: start: 20090928, end: 20091005
  2. VALPROIC ACID [Suspect]
     Indication: DEPRESSION
     Dosage: 500 MG EVERY DAY PO
     Route: 048
     Dates: start: 20090928, end: 20091005
  3. VALPROIC ACID [Suspect]
     Indication: MANIA
     Dosage: 500 MG EVERY DAY PO
     Route: 048
     Dates: start: 20090928, end: 20091005

REACTIONS (5)
  - AMNESIA [None]
  - HALLUCINATION [None]
  - INCOHERENT [None]
  - SPEECH DISORDER [None]
  - SUDDEN ONSET OF SLEEP [None]
